FAERS Safety Report 9738988 (Version 3)
Quarter: 2014Q1

REPORT INFORMATION
  Report Type: Spontaneous
  Country: BR (occurrence: BR)
  Receive Date: 20131209
  Receipt Date: 20140123
  Transmission Date: 20141002
  Serious: Yes (Other)
  Sender: FDA-Public Use
  Company Number: PHHY2013BR142830

PATIENT
  Age: 20 Year
  Sex: Female

DRUGS (3)
  1. RITALIN LA [Suspect]
     Indication: ATTENTION DEFICIT/HYPERACTIVITY DISORDER
     Dosage: UNK UKN, UNK
     Route: 048
  2. RITALIN LA [Suspect]
     Dosage: UNK UKN, UNK
     Route: 048
  3. VENVANSE [Suspect]
     Dosage: UNK UKN, UNK

REACTIONS (5)
  - Depression [Unknown]
  - Apparent death [Unknown]
  - Malaise [Unknown]
  - Disturbance in attention [Recovered/Resolved]
  - Drug ineffective [Unknown]
